FAERS Safety Report 5737299-5 (Version None)
Quarter: 2008Q2

REPORT INFORMATION
  Report Type: 
  Country: None (occurrence: None)
  Receive Date: 20080512
  Receipt Date: 20080512
  Transmission Date: 20081010
  Serious: Yes (Hospitalization)
  Sender: FDA-Public Use
  Company Number: None

PATIENT
  Sex: Male
  Weight: 61.2356 kg

DRUGS (1)
  1. DIGOXIN .25 [Suspect]
     Indication: CARDIAC DISORDER
     Dosage: .0125 DAILY+EVERYOTHER PO
     Route: 048
     Dates: start: 20060101, end: 20070425

REACTIONS (9)
  - ANOREXIA [None]
  - BLOOD ELECTROLYTES ABNORMAL [None]
  - CONFUSIONAL STATE [None]
  - DEHYDRATION [None]
  - DRUG LEVEL ABOVE THERAPEUTIC [None]
  - HEART RATE DECREASED [None]
  - LETHARGY [None]
  - MALAISE [None]
  - RENAL FAILURE [None]
